FAERS Safety Report 25455340 (Version 1)
Quarter: 2025Q2

REPORT INFORMATION
  Report Type: Spontaneous
  Country: US (occurrence: US)
  Receive Date: 20250619
  Receipt Date: 20250619
  Transmission Date: 20250717
  Serious: No
  Sender: ELI LILLY AND COMPANY
  Company Number: US-ELI_LILLY_AND_COMPANY-US202506013005

PATIENT
  Age: 87 Year
  Sex: Female

DRUGS (3)
  1. INSULIN LISPRO [Suspect]
     Active Substance: INSULIN LISPRO
     Indication: Diabetes mellitus
     Route: 065
     Dates: start: 202502
  2. INSULIN LISPRO [Suspect]
     Active Substance: INSULIN LISPRO
     Indication: Diabetes mellitus
     Route: 065
     Dates: start: 202502
  3. INSULIN LISPRO [Suspect]
     Active Substance: INSULIN LISPRO
     Route: 065
     Dates: start: 202502

REACTIONS (1)
  - Blood glucose abnormal [Unknown]
